FAERS Safety Report 24709914 (Version 1)
Quarter: 2024Q4

REPORT INFORMATION
  Report Type: Spontaneous
  Country: IT (occurrence: IT)
  Receive Date: 20241209
  Receipt Date: 20241209
  Transmission Date: 20250115
  Serious: Yes (Other)
  Sender: SAMSUNG BIOEPIS
  Company Number: None

PATIENT
  Age: 24 Year
  Sex: Male

DRUGS (1)
  1. INFLIXIMAB [Suspect]
     Active Substance: INFLIXIMAB
     Indication: Colitis ulcerative
     Route: 042
     Dates: start: 20221110, end: 20240115

REACTIONS (2)
  - Rectal haemorrhage [Recovered/Resolved]
  - Loss of therapeutic response [Unknown]

NARRATIVE: CASE EVENT DATE: 20240115
